FAERS Safety Report 15969179 (Version 4)
Quarter: 2019Q2

REPORT INFORMATION
  Report Type: Spontaneous
  Country: US (occurrence: US)
  Receive Date: 20190215
  Receipt Date: 20190524
  Transmission Date: 20190711
  Serious: Yes (Other)
  Sender: FDA-Public Use
  Company Number: US-ASTRAZENECA-2018SF20984

PATIENT
  Age: 511 Month
  Sex: Male

DRUGS (27)
  1. REGLAN [Concomitant]
     Active Substance: METOCLOPRAMIDE HYDROCHLORIDE
  2. METOCLOPRAMIDE. [Concomitant]
     Active Substance: METOCLOPRAMIDE
  3. PROMETHAZINE [Concomitant]
     Active Substance: PROMETHAZINE\PROMETHAZINE HYDROCHLORIDE
  4. NIFEDIPINE. [Concomitant]
     Active Substance: NIFEDIPINE
  5. TRADJENTA [Concomitant]
     Active Substance: LINAGLIPTIN
  6. CARVEDILOL. [Concomitant]
     Active Substance: CARVEDILOL
  7. HYDROCHLOROTHIAZIDE. [Concomitant]
     Active Substance: HYDROCHLOROTHIAZIDE
  8. SIMVASTATIN. [Concomitant]
     Active Substance: SIMVASTATIN
  9. NOVOLOG [Concomitant]
     Active Substance: INSULIN ASPART
  10. GENTAMICIN. [Concomitant]
     Active Substance: GENTAMICIN
  11. GLIPIZIDE. [Concomitant]
     Active Substance: GLIPIZIDE
  12. METOCLOPRAMIDE. [Concomitant]
     Active Substance: METOCLOPRAMIDE
  13. NEXIUM [Suspect]
     Active Substance: ESOMEPRAZOLE MAGNESIUM
     Indication: GASTROOESOPHAGEAL REFLUX DISEASE
     Route: 048
     Dates: start: 20010220, end: 20171231
  14. LISINOPRIL. [Concomitant]
     Active Substance: LISINOPRIL
  15. COREG [Concomitant]
     Active Substance: CARVEDILOL
  16. PROTONIX [Suspect]
     Active Substance: PANTOPRAZOLE SODIUM
     Indication: GASTROOESOPHAGEAL REFLUX DISEASE
     Route: 065
     Dates: start: 20000202, end: 20171231
  17. SENSIPAR [Concomitant]
     Active Substance: CINACALCET HYDROCHLORIDE
  18. PERCOCET [Concomitant]
     Active Substance: ACETAMINOPHEN\OXYCODONE HYDROCHLORIDE
  19. HYDROCODON-ACETAMINOPHEN [Concomitant]
     Active Substance: ACETAMINOPHEN\HYDROCODONE
  20. CETIRIZINE [Concomitant]
     Active Substance: CETIRIZINE HYDROCHLORIDE
  21. NIFEDIPINE. [Concomitant]
     Active Substance: NIFEDIPINE
  22. ATORVASTATIN [Concomitant]
     Active Substance: ATORVASTATIN
  23. DEXILANT [Suspect]
     Active Substance: DEXLANSOPRAZOLE
     Indication: GASTROOESOPHAGEAL REFLUX DISEASE
     Route: 065
     Dates: start: 20170130, end: 20171231
  24. GLIPIZIDE. [Concomitant]
     Active Substance: GLIPIZIDE
  25. TORSEMIDE. [Concomitant]
     Active Substance: TORSEMIDE
  26. BENICAR [Concomitant]
     Active Substance: OLMESARTAN MEDOXOMIL
  27. TRAMADOL. [Concomitant]
     Active Substance: TRAMADOL

REACTIONS (5)
  - Renal failure [Unknown]
  - Acute kidney injury [Unknown]
  - Chronic kidney disease [Not Recovered/Not Resolved]
  - End stage renal disease [Not Recovered/Not Resolved]
  - Renal injury [Unknown]

NARRATIVE: CASE EVENT DATE: 201109
